FAERS Safety Report 21388735 (Version 1)
Quarter: 2022Q3

REPORT INFORMATION
  Report Type: Spontaneous
  Country: US (occurrence: None)
  Receive Date: 20220927
  Receipt Date: 20220927
  Transmission Date: 20221027
  Serious: Yes (Other)
  Sender: FDA-Public Use
  Company Number: None

PATIENT
  Sex: Female

DRUGS (4)
  1. CAPECITABINE [Suspect]
     Active Substance: CAPECITABINE
     Indication: Breast cancer female
     Dosage: FREQUENCY : DAILY;?TAKE 4 TABLETS (2,000 MG) BY MOUTH TWICE DAILY ON DAYS 1-14 OF A 21 DAY CYCLE. TA
     Route: 048
     Dates: start: 20220118
  2. GABAPENTIN TAB [Concomitant]
  3. PANTOPRAZOLE TAB [Concomitant]
  4. POTASSIUM POW CITRATE [Concomitant]

REACTIONS (9)
  - Nerve injury [None]
  - Pain in extremity [None]
  - Pain in extremity [None]
  - Hypoaesthesia [None]
  - Hypoaesthesia [None]
  - Therapy interrupted [None]
  - Surgery [None]
  - Impaired healing [None]
  - Diarrhoea [None]
